FAERS Safety Report 4807777-1 (Version None)
Quarter: 2005Q4

REPORT INFORMATION
  Report Type: 
  Country: None (occurrence: None)
  Receive Date: 20051020
  Receipt Date: 20051008
  Transmission Date: 20060501
  Serious: Yes (Other)
  Sender: FDA-Public Use
  Company Number: 2005139188

PATIENT
  Age: 2 Year
  Sex: Male
  Weight: 13.6079 kg

DRUGS (1)
  1. CHILDREN'S PEDIACARE (PSEUDOEPHEDRINE, DEXTROAMPHETHORPHAN, CHLORPHENI [Suspect]
     Indication: ACCIDENTAL EXPOSURE
     Dosage: AT LEAST 1/2 BOTTLE ONCE, ORAL
     Route: 048
     Dates: start: 20051008, end: 20051008

REACTIONS (3)
  - ACCIDENTAL DRUG INTAKE BY CHILD [None]
  - LOGORRHOEA [None]
  - PSYCHOMOTOR HYPERACTIVITY [None]
